FAERS Safety Report 9222795 (Version 8)
Quarter: 2014Q4

REPORT INFORMATION
  Report Type: Report from Study
  Country: BR (occurrence: BR)
  Receive Date: 20130410
  Receipt Date: 20141224
  Transmission Date: 20150529
  Serious: Yes (Life-Threatening, Hospitalization, Other)
  Sender: FDA-Public Use
  Company Number: BR-ROCHE-1209473

PATIENT
  Age: 66 Year
  Sex: Male
  Weight: 72 kg

DRUGS (16)
  1. XOLAIR [Suspect]
     Active Substance: OMALIZUMAB
     Route: 065
  2. ROSUVASTATIN [Concomitant]
     Active Substance: ROSUVASTATIN
     Route: 065
     Dates: start: 201301
  3. OMEPRAZOLE. [Concomitant]
     Active Substance: OMEPRAZOLE
  4. MONOCORDIL [Concomitant]
     Active Substance: ISOSORBIDE MONONITRATE
     Route: 065
     Dates: start: 20130127
  5. CLOPIDOGREL [Suspect]
     Active Substance: CLOPIDOGREL BISULFATE
     Indication: CARDIAC DISORDER
     Route: 065
  6. MONTELAIR [Concomitant]
     Active Substance: MONTELUKAST SODIUM
  7. XOLAIR [Suspect]
     Active Substance: OMALIZUMAB
     Indication: ASTHMA
     Route: 058
  8. PREDNISONE. [Concomitant]
     Active Substance: PREDNISONE
     Route: 065
     Dates: start: 201301
  9. XOLAIR [Suspect]
     Active Substance: OMALIZUMAB
     Indication: BLOOD IMMUNOGLOBULIN E INCREASED
     Route: 058
     Dates: start: 2009
  10. XOLAIR [Suspect]
     Active Substance: OMALIZUMAB
     Indication: HYPERSENSITIVITY
     Route: 058
  11. ROSUVASTATIN CALCIUM. [Concomitant]
     Active Substance: ROSUVASTATIN CALCIUM
     Route: 065
     Dates: start: 201301
  12. AEROLIN [Concomitant]
     Active Substance: ALBUTEROL
  13. ESOMEPRAZOLE MAGNESIUM. [Concomitant]
     Active Substance: ESOMEPRAZOLE MAGNESIUM
  14. FORASEQ (BRAZIL) [Suspect]
     Active Substance: BUDESONIDE\FORMOTEROL FUMARATE
     Indication: ASTHMA
     Dosage: 12/400; MORNING AND NIGHT
     Route: 048
  15. LEVOFLOXACIN. [Concomitant]
     Active Substance: LEVOFLOXACIN
  16. ACETYLSALICYLIC ACID [Suspect]
     Active Substance: ASPIRIN
     Indication: CARDIAC DISORDER
     Route: 048
     Dates: start: 201301

REACTIONS (35)
  - Dyspepsia [Recovering/Resolving]
  - Infarction [Recovered/Resolved]
  - Hearing impaired [Not Recovered/Not Resolved]
  - Weight decreased [Not Recovered/Not Resolved]
  - Blood pressure decreased [Recovering/Resolving]
  - Fatigue [Not Recovered/Not Resolved]
  - Dyspnoea [Recovering/Resolving]
  - Haemorrhage [Unknown]
  - Speech disorder [Not Recovered/Not Resolved]
  - Throat tightness [Not Recovered/Not Resolved]
  - Wheezing [Recovering/Resolving]
  - Lung disorder [Unknown]
  - Asthma [Recovering/Resolving]
  - Aortic disorder [Not Recovered/Not Resolved]
  - Cardiac disorder [Not Recovered/Not Resolved]
  - Abasia [Not Recovered/Not Resolved]
  - Apparent death [Recovering/Resolving]
  - Drug ineffective [Unknown]
  - Asthmatic crisis [Not Recovered/Not Resolved]
  - Dysentery [Unknown]
  - Yellow skin [Unknown]
  - Visual acuity reduced [Not Recovered/Not Resolved]
  - Ear infection [Recovering/Resolving]
  - Dysphagia [Not Recovered/Not Resolved]
  - Multiple allergies [Unknown]
  - Hypersensitivity [Not Recovered/Not Resolved]
  - Memory impairment [Not Recovered/Not Resolved]
  - Ear discomfort [Recovering/Resolving]
  - Diabetes mellitus [Not Recovered/Not Resolved]
  - Diverticulitis [Unknown]
  - Ear disorder [Recovering/Resolving]
  - Asthenia [Not Recovered/Not Resolved]
  - Stress [Not Recovered/Not Resolved]
  - Fumbling [Unknown]
  - Head discomfort [Not Recovered/Not Resolved]

NARRATIVE: CASE EVENT DATE: 20130101
